FAERS Safety Report 5027296-X (Version None)
Quarter: 2006Q2

REPORT INFORMATION
  Report Type: 
  Country: None (occurrence: None)
  Receive Date: 20060608
  Receipt Date: 20060529
  Transmission Date: 20061013
  Serious: Yes (Hospitalization)
  Sender: FDA-Public Use
  Company Number: 2006070134

PATIENT
  Sex: Female
  Weight: 73 kg

DRUGS (4)
  1. ZOLOFT [Suspect]
     Indication: AFFECTIVE DISORDER
     Dosage: 100 MG (50 MG, 2 IN 1 D), ORAL
     Route: 048
     Dates: start: 19990101
  2. ZOLOFT [Suspect]
     Indication: BULIMIA NERVOSA
     Dosage: 100 MG (50 MG, 2 IN 1 D), ORAL
     Route: 048
     Dates: start: 19990101
  3. OMEPRAZOLE [Concomitant]
  4. MACROGOL (MACROGOL) [Concomitant]

REACTIONS (2)
  - APPENDICECTOMY [None]
  - DRUG EXPOSURE DURING PREGNANCY [None]
